FAERS Safety Report 6453606-2 (Version None)
Quarter: 2009Q4

REPORT INFORMATION
  Report Type: 
  Country: None (occurrence: None)
  Receive Date: 20091117
  Receipt Date: 20091113
  Transmission Date: 20100525
  Serious: Yes (Death, Hospitalization, Other)
  Sender: FDA-Public Use
  Company Number: 2009003065

PATIENT
  Age: 79 Year
  Sex: Male

DRUGS (17)
  1. ERLOTINIB HYDROCHLORIDE [Suspect]
     Indication: HEPATIC NEOPLASM MALIGNANT
     Dosage: (150 MG,QD),ORAL ; (100 MG,QD),ORAL
     Route: 048
     Dates: start: 20091001, end: 20091003
  2. ERLOTINIB HYDROCHLORIDE [Suspect]
     Indication: HEPATIC NEOPLASM MALIGNANT
     Dosage: (150 MG,QD),ORAL ; (100 MG,QD),ORAL
     Route: 048
     Dates: start: 20091007, end: 20091015
  3. SORAFENIB [Suspect]
     Dosage: (800 MG,QD),ORAL ; (800 MG,QD),ORAL
     Route: 048
     Dates: start: 20091001, end: 20091003
  4. SORAFENIB [Suspect]
     Dosage: (800 MG,QD),ORAL ; (800 MG,QD),ORAL
     Route: 048
     Dates: start: 20091006, end: 20091015
  5. ISOSORBIDE DINITRATE [Concomitant]
  6. ASPIRIN [Concomitant]
  7. AMLODIPINE [Concomitant]
  8. FERROUS FUMARATE [Concomitant]
  9. SALBUTAMOL (SALBUTAMOL) [Concomitant]
  10. ATROVENT [Concomitant]
  11. BECLOMETHASONE DIPROPIONATE [Concomitant]
  12. ALDACTONE [Concomitant]
  13. LASIX [Concomitant]
  14. GAMAT JELLY [Concomitant]
  15. RANITIDINE [Concomitant]
  16. FAMOTIDINE [Concomitant]
  17. SIMVASTATIN [Concomitant]

REACTIONS (14)
  - ABDOMINAL PAIN [None]
  - ACUTE MYOCARDIAL INFARCTION [None]
  - ANAEMIA [None]
  - ASPARTATE AMINOTRANSFERASE INCREASED [None]
  - BLOOD BILIRUBIN INCREASED [None]
  - CARDIAC FAILURE CONGESTIVE [None]
  - CONSTIPATION [None]
  - DECREASED APPETITE [None]
  - DIARRHOEA [None]
  - LETHARGY [None]
  - PNEUMONIA [None]
  - PYREXIA [None]
  - SPEECH DISORDER [None]
  - VOMITING [None]
